FAERS Safety Report 7698714-3 (Version None)
Quarter: 2011Q3

REPORT INFORMATION
  Report Type: 
  Country: None (occurrence: None)
  Receive Date: 20110819
  Receipt Date: 20110809
  Transmission Date: 20111222
  Serious: Yes (Other)
  Sender: FDA-Public Use
  Company Number: US-JNJFOC-20110805835

PATIENT
  Age: 53 Year
  Sex: Female

DRUGS (2)
  1. METHOTREXATE [Concomitant]
     Route: 065
  2. INFLIXIMAB, RECOMBINANT [Suspect]
     Indication: RHEUMATOID ARTHRITIS
     Route: 042

REACTIONS (1)
  - HISTOPLASMOSIS [None]
